FAERS Safety Report 18308460 (Version 3)
Quarter: 2020Q4

REPORT INFORMATION
  Report Type: Report from Study
  Country: CN (occurrence: CN)
  Receive Date: 20200924
  Receipt Date: 20201111
  Transmission Date: 20210113
  Serious: Yes (Hospitalization)
  Sender: FDA-Public Use
  Company Number: NVSC2020CN245310

PATIENT
  Age: 63 Year
  Sex: Male

DRUGS (3)
  1. NORVASC [Concomitant]
     Active Substance: AMLODIPINE BESYLATE
     Indication: BLOOD PRESSURE MEASUREMENT
     Dosage: 1 DF, QD
     Route: 048
     Dates: start: 2014
  2. ZYKADIA [Suspect]
     Active Substance: CERITINIB
     Dosage: 300 MG, QD
     Route: 048
     Dates: start: 20191224
  3. ZYKADIA [Suspect]
     Active Substance: CERITINIB
     Indication: NON-SMALL CELL LUNG CANCER
     Dosage: 450 MG, QD
     Route: 048
     Dates: start: 20190111

REACTIONS (4)
  - Diarrhoea [Not Recovered/Not Resolved]
  - Pruritus [Recovered/Resolved]
  - Swelling [Recovered/Resolved]
  - Hypersensitivity [Recovered/Resolved]

NARRATIVE: CASE EVENT DATE: 20190111
